FAERS Safety Report 10409263 (Version 1)
Quarter: 2014Q3

REPORT INFORMATION
  Report Type: Spontaneous
  Country: US (occurrence: None)
  Receive Date: 20140825
  Receipt Date: 20140825
  Transmission Date: 20150326
  Serious: Yes (Disabling, Other)
  Sender: FDA-Public Use
  Company Number: None

PATIENT
  Age: 45 Year
  Sex: Male
  Weight: 59.42 kg

DRUGS (2)
  1. GABAPENTIN. [Suspect]
     Active Substance: GABAPENTIN
     Indication: NEURALGIA
     Dosage: 100 MG, PRN EVERY 24 HOURS, TAKEN BY MOUTH
     Route: 048
     Dates: start: 20140310, end: 20140401
  2. GRALISE [Suspect]
     Active Substance: GABAPENTIN
     Indication: NEURALGIA
     Route: 048
     Dates: start: 20140310, end: 20140401

REACTIONS (3)
  - Musculoskeletal stiffness [None]
  - Motor dysfunction [None]
  - Asthenia [None]

NARRATIVE: CASE EVENT DATE: 20140401
